FAERS Safety Report 5141882-8 (Version None)
Quarter: 2006Q4

REPORT INFORMATION
  Report Type: 
  Country: None (occurrence: None)
  Receive Date: 20061027
  Receipt Date: 20061013
  Transmission Date: 20070319
  Serious: Yes (Hospitalization)
  Sender: FDA-Public Use
  Company Number: 2006SP004376

PATIENT
  Sex: 0

DRUGS (2)
  1. TEMODAL [Suspect]
     Indication: METASTASES TO CENTRAL NERVOUS SYSTEM
  2. CISPLATIN [Concomitant]

REACTIONS (1)
  - FEBRILE BONE MARROW APLASIA [None]
